FAERS Safety Report 18517208 (Version 2)
Quarter: 2021Q1

REPORT INFORMATION
  Report Type: Other
  Country: US (occurrence: US)
  Receive Date: 20201118
  Receipt Date: 20210115
  Transmission Date: 20210419
  Serious: No
  Sender: FDA-Public Use
  Company Number: US-ROCHE-2710776

PATIENT
  Sex: Female
  Weight: 70.37 kg

DRUGS (8)
  1. LINZESS [Concomitant]
     Active Substance: LINACLOTIDE
     Dosage: TAKE 72 MCG BY MOUTH 1 TIME EACH DAY
     Route: 048
  2. OCREVUS [Suspect]
     Active Substance: OCRELIZUMAB
     Indication: MULTIPLE SCLEROSIS
     Dosage: ONGOING: YES
     Route: 042
     Dates: start: 201911
  3. ASPIRIN. [Concomitant]
     Active Substance: ASPIRIN
     Dosage: TAKE 1 TABLET BY MOUTH 1 TIME EACH DAY
     Route: 048
  4. VYVANSE [Concomitant]
     Active Substance: LISDEXAMFETAMINE DIMESYLATE
     Dosage: TAKE 1 CAPSULE MOUTH 1 TIME EACH DAY IN THE MORNING
     Route: 048
  5. OCREVUS [Suspect]
     Active Substance: OCRELIZUMAB
     Indication: IMMUNE SYSTEM DISORDER
     Route: 042
  6. VITAMIN D3 [Concomitant]
     Active Substance: CHOLECALCIFEROL
     Dosage: TAKE 1,000 UNITS BY MOUTH 1 TIME EACH DAY
     Route: 048
  7. MYRBETRIQ [Concomitant]
     Active Substance: MIRABEGRON
     Dosage: TK 1 PO QD
     Route: 048
  8. VALTREX [Concomitant]
     Active Substance: VALACYCLOVIR HYDROCHLORIDE
     Dosage: TAKE 1 TABLET BY MOUTH 2 TIMES PER DAY
     Route: 048

REACTIONS (9)
  - Gait disturbance [Unknown]
  - Muscular weakness [Unknown]
  - Sexual dysfunction [Unknown]
  - Memory impairment [Unknown]
  - Micturition urgency [Unknown]
  - Nasal herpes [Unknown]
  - Muscle spasms [Unknown]
  - Fatigue [Unknown]
  - Joint stiffness [Unknown]
